FAERS Safety Report 9898949 (Version 1)
Quarter: 2014Q1

REPORT INFORMATION
  Report Type: Spontaneous
  Country: US (occurrence: US)
  Receive Date: 20140214
  Receipt Date: 20140214
  Transmission Date: 20141002
  Serious: Yes (Other)
  Sender: FDA-Public Use
  Company Number: US-GLAXOSMITHKLINE-A1060026A

PATIENT
  Sex: Female

DRUGS (2)
  1. TREXIMET [Suspect]
     Indication: MIGRAINE
     Dosage: 1TAB AS REQUIRED
     Route: 048
     Dates: start: 2009
  2. BIRTH CONTROL PILLS [Concomitant]

REACTIONS (6)
  - Nephrolithiasis [Unknown]
  - Kidney infection [Unknown]
  - Urinary tract infection [Unknown]
  - Drug administration error [Unknown]
  - Overdose [Unknown]
  - Migraine [Unknown]
